FAERS Safety Report 16269824 (Version 1)
Quarter: 2019Q2

REPORT INFORMATION
  Report Type: Spontaneous
  Country: US (occurrence: US)
  Receive Date: 20190503
  Receipt Date: 20190503
  Transmission Date: 20190711
  Serious: No
  Sender: FDA-Public Use
  Company Number: US-009507513-1904USA006064

PATIENT
  Age: 31 Year
  Sex: Female
  Weight: 69.84 kg

DRUGS (3)
  1. NEXPLANON [Suspect]
     Active Substance: ETONOGESTREL
     Dosage: 1 UNK
     Route: 059
     Dates: start: 20190409, end: 20190409
  2. NEXPLANON [Suspect]
     Active Substance: ETONOGESTREL
     Dosage: 1 UNK
     Route: 059
     Dates: start: 20190409
  3. NEXPLANON [Suspect]
     Active Substance: ETONOGESTREL
     Indication: CONTRACEPTION
     Dosage: 1 DOSAGE FORM
     Route: 059
     Dates: start: 201405

REACTIONS (4)
  - Complication of device insertion [Recovered/Resolved]
  - Implant site scar [Recovering/Resolving]
  - Maternal exposure before pregnancy [Unknown]
  - Implant site fibrosis [Recovering/Resolving]

NARRATIVE: CASE EVENT DATE: 201511
